FAERS Safety Report 13191491 (Version 1)
Quarter: 2017Q1

REPORT INFORMATION
  Report Type: Spontaneous
  Country: US (occurrence: US)
  Receive Date: 20170207
  Receipt Date: 20170207
  Transmission Date: 20170428
  Serious: No
  Sender: FDA-Public Use
  Company Number: US-BIOGEN-2017BI00354456

PATIENT

DRUGS (1)
  1. TYSABRI [Suspect]
     Active Substance: NATALIZUMAB
     Indication: PRODUCT USED FOR UNKNOWN INDICATION
     Route: 065

REACTIONS (6)
  - Disturbance in attention [Unknown]
  - Multiple sclerosis relapse [Unknown]
  - Pain [Unknown]
  - Speech disorder [Unknown]
  - Fall [Unknown]
  - Adverse reaction [Unknown]
